FAERS Safety Report 14443844 (Version 1)
Quarter: 2018Q1

REPORT INFORMATION
  Report Type: Spontaneous
  Country: US (occurrence: US)
  Receive Date: 20180125
  Receipt Date: 20180125
  Transmission Date: 20180509
  Serious: Yes (Hospitalization)
  Sender: FDA-Public Use
  Company Number: None

PATIENT
  Age: 70 Year
  Sex: Male
  Weight: 98 kg

DRUGS (1)
  1. RIVAROXABAN [Suspect]
     Active Substance: RIVAROXABAN
     Route: 048
     Dates: start: 20170101, end: 20171108

REACTIONS (6)
  - Haemoglobin decreased [None]
  - Dyspnoea [None]
  - Chest pain [None]
  - Gastrointestinal haemorrhage [None]
  - Diverticulum intestinal haemorrhagic [None]
  - Haemorrhage [None]

NARRATIVE: CASE EVENT DATE: 20171108
